FAERS Safety Report 4662459-4 (Version None)
Quarter: 2005Q2

REPORT INFORMATION
  Report Type: 
  Country: None (occurrence: None)
  Receive Date: 20050512
  Receipt Date: 20050503
  Transmission Date: 20051028
  Serious: Yes (Disabling)
  Sender: FDA-Public Use
  Company Number: NLWYE506215MAR05

PATIENT
  Age: 51 Year
  Sex: Female

DRUGS (5)
  1. RAPAMUNE [Suspect]
     Indication: PROPHYLAXIS AGAINST TRANSPLANT REJECTION
     Dosage: 4 MG 1X PER 1 DAY
     Route: 048
     Dates: start: 20041014, end: 20050210
  2. PREDNISOLONE [Concomitant]
  3. ACTONEL [Concomitant]
  4. NORMISON (TEMAZEPAM) [Concomitant]
  5. LOSEC (OMEPRAZOLE) [Concomitant]

REACTIONS (3)
  - COMPLICATIONS OF TRANSPLANTED KIDNEY [None]
  - KIDNEY TRANSPLANT REJECTION [None]
  - RENAL IMPAIRMENT [None]
